FAERS Safety Report 25463274 (Version 2)
Quarter: 2025Q3

REPORT INFORMATION
  Report Type: Spontaneous
  Country: EU (occurrence: EU)
  Receive Date: 20250620
  Receipt Date: 20250703
  Transmission Date: 20251020
  Serious: Yes (Other)
  Sender: BAUSCH AND LOMB
  Company Number: EU-BAUSCH-BL-2025-007561

PATIENT
  Age: 1 Day
  Sex: Male
  Weight: 4 kg

DRUGS (4)
  1. HYDROCORTISONE [Suspect]
     Active Substance: HYDROCORTISONE
     Indication: Pituitary tumour benign
     Route: 064
     Dates: start: 202404, end: 20250114
  2. DOSTINEX [Suspect]
     Active Substance: CABERGOLINE
     Indication: Pituitary tumour benign
     Dosage: 0.5 MILLIGRAM IN 1 WEEK
     Route: 064
     Dates: start: 202404, end: 20250114
  3. LEVOTHYROXINE SODIUM [Suspect]
     Active Substance: LEVOTHYROXINE SODIUM
     Indication: Pituitary tumour benign
     Route: 064
     Dates: start: 202404, end: 20250114
  4. FOLIC ACID [Suspect]
     Active Substance: FOLIC ACID
     Indication: Product used for unknown indication
     Route: 064

REACTIONS (4)
  - Hyperkalaemia [Recovered/Resolved]
  - Somnolence [Recovered/Resolved]
  - Foetal macrosomia [Unknown]
  - Foetal exposure during pregnancy [Recovered/Resolved]

NARRATIVE: CASE EVENT DATE: 20240401
